FAERS Safety Report 21916816 (Version 1)
Quarter: 2023Q1

REPORT INFORMATION
  Report Type: Spontaneous
  Country: CA (occurrence: CA)
  Receive Date: 20230126
  Receipt Date: 20230126
  Transmission Date: 20230417
  Serious: Yes (Life-Threatening)
  Sender: FDA-Public Use
  Company Number: CA-PFIZER INC-202300038339

PATIENT
  Age: 17 Year
  Sex: Female
  Weight: 105 kg

DRUGS (42)
  1. METHOTREXATE SODIUM [Suspect]
     Active Substance: METHOTREXATE SODIUM
     Indication: Prophylaxis
     Dosage: 11 MG
     Route: 041
  2. METHOTREXATE SODIUM [Suspect]
     Active Substance: METHOTREXATE SODIUM
     Indication: Graft versus host disease
  3. ETOPOSIDE [Suspect]
     Active Substance: ETOPOSIDE
     Indication: Surgical preconditioning
     Dosage: 3500 MG
     Route: 042
  4. ACETAMINOPHEN [Concomitant]
     Active Substance: ACETAMINOPHEN
  5. ALTEPLASE [Concomitant]
     Active Substance: ALTEPLASE
  6. AMITRIPTYLINE [Concomitant]
     Active Substance: AMITRIPTYLINE
  7. CALCIUM CARBONATE [Concomitant]
     Active Substance: CALCIUM CARBONATE
  8. CEFTAZIDIME [Concomitant]
     Active Substance: CEFTAZIDIME
  9. CETIRIZINE [Concomitant]
     Active Substance: CETIRIZINE HYDROCHLORIDE
     Route: 065
  10. CHOLECALCIFEROL [Concomitant]
     Active Substance: CHOLECALCIFEROL
     Route: 065
  11. CYCLOSPORINE [Concomitant]
     Active Substance: CYCLOSPORINE
     Route: 065
  12. DEXAMETHASONE [Concomitant]
     Active Substance: DEXAMETHASONE
     Route: 065
  13. DIMENHYDRINATE [Concomitant]
     Active Substance: DIMENHYDRINATE
  14. DIPHENHYDRAMINE [Concomitant]
     Active Substance: DIPHENHYDRAMINE
  15. ENOXAPARIN [Concomitant]
     Active Substance: ENOXAPARIN
  16. FAMOTIDINE [Concomitant]
     Active Substance: FAMOTIDINE
  17. FILGRASTIM [Concomitant]
     Active Substance: FILGRASTIM
  18. FLUCONAZOLE [Concomitant]
     Active Substance: FLUCONAZOLE
  19. FUROSEMIDE [Concomitant]
     Active Substance: FUROSEMIDE
     Route: 065
  20. GRANISETRON [Concomitant]
     Active Substance: GRANISETRON
  21. HEPARIN SODIUM [Concomitant]
     Active Substance: HEPARIN SODIUM
  22. LANSOPRAZOLE [Concomitant]
     Active Substance: LANSOPRAZOLE
  23. LETERMOVIR [Concomitant]
     Active Substance: LETERMOVIR
  24. LEUPROLIDE ACETATE [Concomitant]
     Active Substance: LEUPROLIDE ACETATE
  25. LORAZEPAM [Concomitant]
     Active Substance: LORAZEPAM
  26. MAGNESIUM SULFATE [Concomitant]
     Active Substance: MAGNESIUM SULFATE
  27. METOCLOPRAMIDE [Concomitant]
     Active Substance: METOCLOPRAMIDE
  28. MORPHINE [Concomitant]
     Active Substance: MORPHINE
  29. MYCAMINE [Concomitant]
     Active Substance: MICAFUNGIN SODIUM
  30. NABILONE [Concomitant]
     Active Substance: NABILONE
  31. NIFEDIPINE [Concomitant]
     Active Substance: NIFEDIPINE
  32. NORETHINDRONE ACETATE [Concomitant]
     Active Substance: NORETHINDRONE ACETATE
  33. OLANZAPINE [Concomitant]
     Active Substance: OLANZAPINE
  34. ONDANSETRON [Concomitant]
     Active Substance: ONDANSETRON
  35. PANTOPRAZOLE [Concomitant]
     Active Substance: PANTOPRAZOLE
  36. POLYETHYLENE GLYCOLS [Concomitant]
     Active Substance: POLYETHYLENE GLYCOLS
  37. PREGABALIN [Concomitant]
     Active Substance: PREGABALIN
  38. PROTAMINE SULFATE [Concomitant]
     Active Substance: PROTAMINE SULFATE
  39. TACROLIMUS [Concomitant]
     Active Substance: TACROLIMUS
  40. TRANEXAMIC ACID [Concomitant]
     Active Substance: TRANEXAMIC ACID
  41. URSODIOL [Concomitant]
     Active Substance: URSODIOL
  42. VALACYCLOVIR [Concomitant]
     Active Substance: VALACYCLOVIR HYDROCHLORIDE

REACTIONS (5)
  - Aplastic anaemia [Recovered/Resolved]
  - Febrile neutropenia [Recovered/Resolved]
  - Mucosal inflammation [Recovered/Resolved]
  - Transfusion [Recovered/Resolved]
  - Off label use [Unknown]
